FAERS Safety Report 9725411 (Version 1)
Quarter: 2013Q4

REPORT INFORMATION
  Report Type: Spontaneous
  Country: US (occurrence: None)
  Receive Date: 20131129
  Receipt Date: 20131129
  Transmission Date: 20140711
  Serious: Yes (Life-Threatening, Hospitalization)
  Sender: FDA-Public Use
  Company Number: 2013P1021392

PATIENT
  Age: 54 Year
  Sex: Female

DRUGS (7)
  1. METFORMIN [Suspect]
  2. ENALAPRIL [Concomitant]
  3. GLIMEPIRIDE [Concomitant]
  4. NIMESULIDE [Concomitant]
  5. IMIPRAMINE [Concomitant]
  6. ASPIRIN [Concomitant]
  7. IBUPROFEN [Concomitant]

REACTIONS (22)
  - Malaise [None]
  - Asthenia [None]
  - Chills [None]
  - Skin warm [None]
  - Hypophagia [None]
  - Vomiting [None]
  - Unresponsive to stimuli [None]
  - Atrial fibrillation [None]
  - Tachypnoea [None]
  - Somnolence [None]
  - Blood pressure decreased [None]
  - Atelectasis [None]
  - Continuous haemodiafiltration [None]
  - Metabolic acidosis [None]
  - Hyperphosphataemia [None]
  - Renal failure [None]
  - Nephropathy toxic [None]
  - Pancreatitis acute [None]
  - Dyspnoea [None]
  - Confusional state [None]
  - Agitation [None]
  - Discomfort [None]
